FAERS Safety Report 8984087 (Version 1)
Quarter: 2012Q4

REPORT INFORMATION
  Report Type: Spontaneous
  Country: NL (occurrence: None)
  Receive Date: 20121214
  Receipt Date: 20121214
  Transmission Date: 20130627
  Serious: Yes (Life-Threatening)
  Sender: FDA-Public Use
  Company Number: 1524829

PATIENT
  Age: 50 Year
  Sex: Male

DRUGS (2)
  1. EPIRUBICIN HYDROCHLORIDE [Suspect]
     Indication: BLADDER CANCER
     Route: 043
  2. SODIUM CHLORIDE [Concomitant]

REACTIONS (2)
  - Extravasation [None]
  - Bladder disorder [None]
